FAERS Safety Report 6534867-8 (Version None)
Quarter: 2010Q1

REPORT INFORMATION
  Report Type: 
  Country: None (occurrence: None)
  Receive Date: 20100112
  Receipt Date: 20100108
  Transmission Date: 20100710
  Serious: Yes (Death, Other)
  Sender: FDA-Public Use
  Company Number: PHEH2009US13228

PATIENT
  Sex: Female

DRUGS (5)
  1. GLEEVEC [Suspect]
     Indication: ACUTE MYELOID LEUKAEMIA RECURRENT
     Dosage: 400 MG, UNK
  2. ADRIAMYCIN PFS [Suspect]
     Indication: ACUTE MYELOID LEUKAEMIA RECURRENT
  3. VINCRISTINE [Suspect]
     Indication: ACUTE MYELOID LEUKAEMIA RECURRENT
  4. ARA-C [Suspect]
     Indication: ACUTE MYELOID LEUKAEMIA RECURRENT
  5. DECADRON                                /CAN/ [Suspect]
     Indication: ACUTE MYELOID LEUKAEMIA RECURRENT

REACTIONS (5)
  - ACUTE BIPHENOTYPIC LEUKAEMIA [None]
  - DRUG INEFFECTIVE [None]
  - INFECTION IN AN IMMUNOCOMPROMISED HOST [None]
  - MALIGNANT NEOPLASM PROGRESSION [None]
  - TERMINAL STATE [None]
